FAERS Safety Report 8158183-6 (Version None)
Quarter: 2012Q1

REPORT INFORMATION
  Report Type: 
  Country: None (occurrence: None)
  Receive Date: 20120222
  Receipt Date: 20120220
  Transmission Date: 20120608
  Serious: Yes (Hospitalization, Other)
  Sender: FDA-Public Use
  Company Number: IT-BRISTOL-MYERS SQUIBB COMPANY-16387011

PATIENT
  Age: 64 Year
  Sex: Male

DRUGS (2)
  1. SPRYCEL [Suspect]
     Indication: CHRONIC MYELOID LEUKAEMIA
     Route: 048
     Dates: start: 20080122
  2. LAMIVUDINE [Concomitant]
     Dosage: 1 TAB/DAY
     Dates: end: 20100917

REACTIONS (1)
  - DIFFUSE LARGE B-CELL LYMPHOMA [None]
